FAERS Safety Report 6894322-2 (Version None)
Quarter: 2010Q3

REPORT INFORMATION
  Report Type: 
  Country: None (occurrence: None)
  Receive Date: 20100708
  Receipt Date: 20090917
  Transmission Date: 20110219
  Serious: Yes (Other)
  Sender: FDA-Public Use
  Company Number: 2009274884

PATIENT
  Age: 39 Year
  Sex: Male
  Weight: 79.4 kg

DRUGS (1)
  1. CHANTIX [Suspect]
     Indication: SMOKING CESSATION THERAPY
     Dosage: 1 MG, 2X/DAY, ORAL
     Route: 048
     Dates: start: 20090603, end: 20090814

REACTIONS (6)
  - ABNORMAL DREAMS [None]
  - AGITATION [None]
  - DEPRESSED MOOD [None]
  - INSOMNIA [None]
  - PARANOIA [None]
  - SUICIDAL IDEATION [None]
